FAERS Safety Report 9653008 (Version 1)
Quarter: 2013Q4

REPORT INFORMATION
  Report Type: Spontaneous
  Country: US (occurrence: US)
  Receive Date: 20131029
  Receipt Date: 20131029
  Transmission Date: 20140711
  Serious: No
  Sender: FDA-Public Use
  Company Number: US-BIOGENIDEC-2013BI078400

PATIENT
  Age: 72 Year
  Sex: Female

DRUGS (11)
  1. TECFIDERA [Suspect]
     Indication: MULTIPLE SCLEROSIS
     Route: 048
     Dates: start: 20130731
  2. ALENDRONATE SODIUM [Concomitant]
  3. AMBIEN CR [Concomitant]
  4. FLUOXETINE HCL [Concomitant]
  5. GEMFIBROZIL [Concomitant]
  6. BENADRYL [Concomitant]
  7. HYDROMORPHONE HCL [Concomitant]
  8. LISINOPRIL [Concomitant]
  9. OXYCODONE HCL [Concomitant]
  10. TEMAZEPAM [Concomitant]
  11. TRAMADOL HCL [Concomitant]

REACTIONS (2)
  - Flushing [Not Recovered/Not Resolved]
  - Pruritus [Not Recovered/Not Resolved]
